FAERS Safety Report 20662502 (Version 1)
Quarter: 2022Q2

REPORT INFORMATION
  Report Type: Spontaneous
  Country: CN (occurrence: None)
  Receive Date: 20220401
  Receipt Date: 20220401
  Transmission Date: 20220721
  Serious: Yes (Other)
  Sender: FDA-Public Use
  Company Number: CN-ROCHE-3062527

PATIENT
  Age: 64 Year
  Sex: Male

DRUGS (4)
  1. MABTHERA [Suspect]
     Active Substance: RITUXIMAB
     Indication: Central nervous system lymphoma
     Dosage: R-HD-MTX, R-MA, LENALIDOMIDE + MTX + R
     Route: 065
     Dates: start: 20210721
  2. METHOTREXATE [Concomitant]
     Active Substance: METHOTREXATE
     Indication: Central nervous system lymphoma
     Dosage: R-HD-MTX, R-MA, LENALIDOMIDE + MTX + R
     Dates: start: 20210721
  3. CYTARABINE [Concomitant]
     Active Substance: CYTARABINE
     Indication: Central nervous system lymphoma
  4. LENALIDOMIDE [Concomitant]
     Active Substance: LENALIDOMIDE
     Indication: Central nervous system lymphoma

REACTIONS (3)
  - Herpes zoster [Unknown]
  - Myelosuppression [Unknown]
  - Sepsis [Unknown]

NARRATIVE: CASE EVENT DATE: 20210823
